FAERS Safety Report 5297817-0 (Version None)
Quarter: 2007Q2

REPORT INFORMATION
  Report Type: 
  Country: None (occurrence: None)
  Receive Date: 20070413
  Receipt Date: 20070413
  Transmission Date: 20071010
  Serious: Yes (Hospitalization)
  Sender: FDA-Public Use
  Company Number: None

PATIENT
  Sex: Female
  Weight: 80.1052 kg

DRUGS (1)
  1. GEMCITABINE [Suspect]
     Indication: CERVIX CARCINOMA
     Dosage: 623 M G/QWKX6 IV
     Route: 042
     Dates: start: 20070129

REACTIONS (8)
  - ABDOMINAL PAIN LOWER [None]
  - CHILLS [None]
  - COUGH [None]
  - FLATULENCE [None]
  - HAEMOGLOBIN DECREASED [None]
  - HEART RATE INCREASED [None]
  - PHARYNGOLARYNGEAL PAIN [None]
  - PYREXIA [None]
